FAERS Safety Report 17477395 (Version 2)
Quarter: 2020Q4

REPORT INFORMATION
  Report Type: Report from Study
  Country: BR (occurrence: BR)
  Receive Date: 20200228
  Receipt Date: 20201202
  Transmission Date: 20210113
  Serious: Yes (Other)
  Sender: FDA-Public Use
  Company Number: BR-JNJFOC-20191112394

PATIENT
  Age: 56 Year
  Sex: Female

DRUGS (6)
  1. CODEINE [Concomitant]
     Active Substance: CODEINE
  2. SIMPONI [Suspect]
     Active Substance: GOLIMUMAB
     Indication: RHEUMATOID ARTHRITIS
     Dosage: 0.5 ML
     Route: 058
     Dates: start: 20180108, end: 20190924
  3. PREDSIM [Concomitant]
     Active Substance: PREDNISOLONE
  4. LORATADINE. [Concomitant]
     Active Substance: LORATADINE
  5. BROMOPRIDE [Concomitant]
     Active Substance: BROMOPRIDE
  6. BUDESONIDE. [Concomitant]
     Active Substance: BUDESONIDE

REACTIONS (1)
  - Bronchiolitis [Not Recovered/Not Resolved]

NARRATIVE: CASE EVENT DATE: 201806
